FAERS Safety Report 10103481 (Version 1)
Quarter: 2014Q2

REPORT INFORMATION
  Report Type: Spontaneous
  Country: CA (occurrence: CA)
  Receive Date: 20140424
  Receipt Date: 20140424
  Transmission Date: 20141212
  Serious: Yes (Other)
  Sender: FDA-Public Use
  Company Number: CA-PFIZER INC-2014111468

PATIENT
  Age: 63 Year
  Sex: Female

DRUGS (18)
  1. CELEBREX [Suspect]
  2. IBUPROFEN [Suspect]
  3. NAPROXEN [Suspect]
  4. WARFARIN [Suspect]
     Dosage: 50.0 MG, AS NEEDED
     Route: 048
  5. ACETAMINOPHEN [Concomitant]
  6. ACETAMINOPHEN WITH CODEINE [Concomitant]
  7. COUMADIN [Concomitant]
  8. DIGOXIN IMMUNE FAB (OVINE) [Concomitant]
  9. DIOVAN [Concomitant]
  10. HEPARIN SODIUM [Concomitant]
     Route: 042
  11. HYDROCHLOROTHIAZIDE [Concomitant]
  12. HYDROXYCHLOROQUINE SULFATE [Concomitant]
  13. K-DUR [Concomitant]
  14. KETOCONAZOLE [Concomitant]
  15. LOPRESOR [Concomitant]
  16. NEXIUM [Concomitant]
  17. NIFEDIPINE [Concomitant]
  18. PREVACID [Concomitant]

REACTIONS (3)
  - Abdominal pain [Not Recovered/Not Resolved]
  - Abdominal wall haematoma [Not Recovered/Not Resolved]
  - Haemoglobin decreased [Not Recovered/Not Resolved]
